FAERS Safety Report 5265859-7 (Version None)
Quarter: 2007Q1

REPORT INFORMATION
  Report Type: 
  Country: None (occurrence: None)
  Receive Date: 20070312
  Receipt Date: 20070312
  Transmission Date: 20070707
  Serious: Yes (Other)
  Sender: FDA-Public Use
  Company Number: None

PATIENT
  Sex: Male
  Weight: 74.8435 kg

DRUGS (1)
  1. UROXATRAL [Suspect]
     Indication: BENIGN PROSTATIC HYPERPLASIA
     Dosage: 10 MG PER DAY ONCE PER DAY PO
     Route: 048
     Dates: start: 20070203, end: 20070207

REACTIONS (13)
  - ABNORMAL FAECES [None]
  - DYSPNOEA [None]
  - DYSURIA [None]
  - EJACULATION DISORDER [None]
  - ERECTILE DYSFUNCTION [None]
  - FATIGUE [None]
  - INTESTINAL FUNCTIONAL DISORDER [None]
  - MUSCLE TIGHTNESS [None]
  - PAIN [None]
  - POST PROCEDURAL COMPLICATION [None]
  - PROSTATIC DISORDER [None]
  - REBOUND EFFECT [None]
  - SCROTAL DISORDER [None]
